FAERS Safety Report 5277447-7 (Version None)
Quarter: 2007Q1

REPORT INFORMATION
  Report Type: 
  Country: None (occurrence: None)
  Receive Date: 20061213
  Receipt Date: 20060331
  Transmission Date: 20070707
  Serious: No
  Sender: FDA-Public Use
  Company Number: 2006UW05894

PATIENT
  Age: 35 Year
  Sex: Female
  Weight: 86.182 kg

DRUGS (1)
  1. SEROQUEL [Suspect]
     Indication: BIPOLAR DISORDER
     Dosage: 25 MG BID PO
     Route: 048
     Dates: start: 20020101, end: 20050901

REACTIONS (1)
  - TARDIVE DYSKINESIA [None]
